FAERS Safety Report 22070668 (Version 2)
Quarter: 2023Q1

REPORT INFORMATION
  Report Type: Report from Study
  Country: JP (occurrence: JP)
  Receive Date: 20230307
  Receipt Date: 20230314
  Transmission Date: 20230418
  Serious: Yes (Hospitalization)
  Sender: FDA-Public Use
  Company Number: JP-JNJFOC-20220957825

PATIENT
  Age: 54 Year
  Sex: Male
  Weight: 85 kg

DRUGS (53)
  1. DARATUMUMAB [Suspect]
     Active Substance: DARATUMUMAB
     Indication: Plasma cell myeloma
     Dosage: 1 COURSE
     Route: 058
     Dates: start: 20220804
  2. DARATUMUMAB [Suspect]
     Active Substance: DARATUMUMAB
     Dosage: 1 COURSE
     Route: 058
     Dates: start: 20220809
  3. DARATUMUMAB [Suspect]
     Active Substance: DARATUMUMAB
     Dosage: 1 COURSE
     Route: 058
     Dates: start: 20220818
  4. DARATUMUMAB [Suspect]
     Active Substance: DARATUMUMAB
     Dosage: 1 COURSE
     Route: 058
     Dates: start: 20220825
  5. DARATUMUMAB [Suspect]
     Active Substance: DARATUMUMAB
     Dosage: 2 COURSES
     Route: 058
     Dates: start: 20220907
  6. DARATUMUMAB [Suspect]
     Active Substance: DARATUMUMAB
     Dosage: 2 COURSES
     Route: 058
     Dates: start: 20220914
  7. DARATUMUMAB [Suspect]
     Active Substance: DARATUMUMAB
     Dosage: 2 COURSES
     Route: 058
     Dates: start: 20220921
  8. DARATUMUMAB [Suspect]
     Active Substance: DARATUMUMAB
     Dosage: 2 COURSES
     Route: 058
     Dates: start: 20220928
  9. DARATUMUMAB [Suspect]
     Active Substance: DARATUMUMAB
     Dosage: 3 COURSES
     Route: 058
     Dates: start: 20221007
  10. DARATUMUMAB [Suspect]
     Active Substance: DARATUMUMAB
     Dosage: 3 COURSES
     Route: 058
     Dates: start: 20221021
  11. DARATUMUMAB [Suspect]
     Active Substance: DARATUMUMAB
     Dosage: 4 COURSES
     Route: 058
     Dates: start: 20221104
  12. DARATUMUMAB [Suspect]
     Active Substance: DARATUMUMAB
     Dosage: 4 COURSES
     Route: 058
     Dates: start: 20221118
  13. REVLIMID [Suspect]
     Active Substance: LENALIDOMIDE
     Indication: Plasma cell myeloma
     Dosage: 1 COURSE
     Route: 048
     Dates: start: 20220804, end: 20220824
  14. REVLIMID [Suspect]
     Active Substance: LENALIDOMIDE
     Dosage: 2 COURSES
     Route: 048
     Dates: start: 20220907, end: 20220927
  15. REVLIMID [Suspect]
     Active Substance: LENALIDOMIDE
     Dosage: 3 COURSES
     Route: 048
     Dates: start: 20221007, end: 20221027
  16. REVLIMID [Suspect]
     Active Substance: LENALIDOMIDE
     Dosage: 4 COURSES
     Route: 048
     Dates: start: 20221104, end: 20221124
  17. ALKERAN [Suspect]
     Active Substance: MELPHALAN
     Indication: Product used for unknown indication
     Route: 042
     Dates: start: 20230116, end: 20230117
  18. LENADEX [Concomitant]
     Active Substance: DEXAMETHASONE ACETATE
     Indication: Plasma cell myeloma
     Dosage: 1 COURSE
     Route: 048
     Dates: start: 20220804
  19. LENADEX [Concomitant]
     Active Substance: DEXAMETHASONE ACETATE
     Indication: Plasma cell myeloma
     Dosage: 1 COURSE
     Route: 048
     Dates: start: 20220809
  20. LENADEX [Concomitant]
     Active Substance: DEXAMETHASONE ACETATE
     Indication: Plasma cell myeloma
     Dosage: 1 COURSE
     Route: 048
     Dates: start: 20220818
  21. LENADEX [Concomitant]
     Active Substance: DEXAMETHASONE ACETATE
     Indication: Plasma cell myeloma
     Dosage: 1 COURSE
     Route: 048
     Dates: start: 20220825
  22. LENADEX [Concomitant]
     Active Substance: DEXAMETHASONE ACETATE
     Indication: Plasma cell myeloma
     Dosage: 2 COURSES
     Route: 048
     Dates: start: 20220907
  23. LENADEX [Concomitant]
     Active Substance: DEXAMETHASONE ACETATE
     Indication: Plasma cell myeloma
     Dosage: 2 COURSES
     Route: 048
     Dates: start: 20220914
  24. LENADEX [Concomitant]
     Active Substance: DEXAMETHASONE ACETATE
     Indication: Plasma cell myeloma
     Dosage: 2 COURSES
     Route: 048
     Dates: start: 20220921
  25. LENADEX [Concomitant]
     Active Substance: DEXAMETHASONE ACETATE
     Indication: Plasma cell myeloma
     Dosage: 2 COURSES
     Route: 048
     Dates: start: 20220928
  26. LENADEX [Concomitant]
     Active Substance: DEXAMETHASONE ACETATE
     Indication: Plasma cell myeloma
     Dosage: 3 COURSES
     Route: 048
     Dates: start: 20221007
  27. LENADEX [Concomitant]
     Active Substance: DEXAMETHASONE ACETATE
     Indication: Plasma cell myeloma
     Dosage: 3 COURSES
     Route: 048
     Dates: start: 20221014
  28. LENADEX [Concomitant]
     Active Substance: DEXAMETHASONE ACETATE
     Indication: Plasma cell myeloma
     Dosage: 3 COURSES
     Route: 048
     Dates: start: 20221021
  29. LENADEX [Concomitant]
     Active Substance: DEXAMETHASONE ACETATE
     Indication: Plasma cell myeloma
     Dosage: 3 COURSES
     Route: 048
     Dates: start: 20221028
  30. LENADEX [Concomitant]
     Active Substance: DEXAMETHASONE ACETATE
     Indication: Plasma cell myeloma
     Dosage: 4 COURSES
     Route: 048
     Dates: start: 20221104
  31. LENADEX [Concomitant]
     Active Substance: DEXAMETHASONE ACETATE
     Indication: Plasma cell myeloma
     Dosage: 4 COURSES
     Route: 048
     Dates: start: 20221111
  32. LENADEX [Concomitant]
     Active Substance: DEXAMETHASONE ACETATE
     Indication: Plasma cell myeloma
     Dosage: 4 COURSES
     Route: 048
     Dates: start: 20221118
  33. LENADEX [Concomitant]
     Active Substance: DEXAMETHASONE ACETATE
     Indication: Plasma cell myeloma
     Dosage: 4 COURSES
     Route: 048
     Dates: start: 20221125
  34. ACETAMINOPHEN\TRAMADOL HYDROCHLORIDE [Concomitant]
     Active Substance: ACETAMINOPHEN\TRAMADOL HYDROCHLORIDE
     Indication: Pain
     Route: 048
     Dates: start: 20220726
  35. ACETAMINOPHEN\TRAMADOL HYDROCHLORIDE [Concomitant]
     Active Substance: ACETAMINOPHEN\TRAMADOL HYDROCHLORIDE
     Indication: Pain
     Route: 048
     Dates: start: 20220811
  36. ASPIRIN [Concomitant]
     Active Substance: ASPIRIN
     Indication: Thrombosis prophylaxis
     Route: 048
     Dates: start: 20220804
  37. RABEPRAZOLE SODIUM [Concomitant]
     Active Substance: RABEPRAZOLE SODIUM
     Indication: Gastritis prophylaxis
     Route: 048
     Dates: start: 20220722
  38. MAGNESIUM OXIDE [Concomitant]
     Active Substance: MAGNESIUM OXIDE
     Indication: Constipation
     Route: 048
     Dates: start: 20220801
  39. CALCIUM LACTATE [Concomitant]
     Active Substance: CALCIUM LACTATE
     Indication: Hypocalcaemia
     Route: 048
     Dates: start: 20220825
  40. SULFAMETHOXAZOLE\TRIMETHOPRIM [Concomitant]
     Active Substance: SULFAMETHOXAZOLE\TRIMETHOPRIM
     Indication: Antifungal prophylaxis
     Dosage: DOSE UNKNOWN
     Route: 048
     Dates: start: 20220811, end: 20220812
  41. AMLODIPINE BESYLATE [Concomitant]
     Active Substance: AMLODIPINE BESYLATE
     Indication: Hypertension
     Route: 048
     Dates: start: 20221007
  42. FEBUXOSTAT [Concomitant]
     Active Substance: FEBUXOSTAT
     Indication: Hyperuricaemia
     Route: 048
     Dates: start: 20220722
  43. BIO-THREE [Concomitant]
     Active Substance: HERBALS
     Indication: Dysbiosis
     Route: 048
     Dates: start: 20220112
  44. VALACYCLOVIR HYDROCHLORIDE [Concomitant]
     Active Substance: VALACYCLOVIR HYDROCHLORIDE
     Indication: Infection prophylaxis
     Route: 048
     Dates: start: 20220112
  45. URSODIOL [Concomitant]
     Active Substance: URSODIOL
     Indication: Prophylaxis
     Route: 048
     Dates: start: 20220112
  46. LEVOFLOXACIN HEMIHYDRATE [Concomitant]
     Active Substance: LEVOFLOXACIN
     Indication: Infection prophylaxis
     Route: 048
     Dates: start: 20230123, end: 20230125
  47. MICAFUNGIN SODIUM [Concomitant]
     Active Substance: MICAFUNGIN SODIUM
     Indication: Infection prophylaxis
     Route: 041
     Dates: start: 20230116
  48. FILGRASTIM [Concomitant]
     Active Substance: FILGRASTIM
     Indication: Neutrophil percentage abnormal
     Route: 041
     Dates: start: 20230121, end: 20230129
  49. FILGRASTIM [Concomitant]
     Active Substance: FILGRASTIM
     Indication: Neutrophil percentage abnormal
     Route: 041
     Dates: start: 20230130, end: 20230202
  50. FILGRASTIM [Concomitant]
     Active Substance: FILGRASTIM
     Indication: Neutrophil percentage abnormal
     Route: 041
     Dates: start: 20230121, end: 20230129
  51. CALCIUM GLUCONATE [Concomitant]
     Active Substance: CALCIUM GLUCONATE
     Indication: Hypocalcaemia
     Route: 041
     Dates: start: 20230124, end: 20230129
  52. ELNEOPA NF NO.1 [Concomitant]
     Indication: Nutritional supplementation
     Route: 041
     Dates: start: 20230124, end: 20230125
  53. PLERIXAFOR [Concomitant]
     Active Substance: PLERIXAFOR
     Indication: Peripheral blood stem cell apheresis
     Route: 065
     Dates: start: 20221212, end: 20221214

REACTIONS (3)
  - Pyrexia [Recovered/Resolved]
  - Febrile neutropenia [Recovered/Resolved]
  - Myelosuppression [Unknown]

NARRATIVE: CASE EVENT DATE: 20220816
